FAERS Safety Report 6640779-1 (Version None)
Quarter: 2010Q1

REPORT INFORMATION
  Report Type: 
  Country: None (occurrence: None)
  Receive Date: 20100318
  Receipt Date: 20100308
  Transmission Date: 20100710
  Serious: Yes (Other)
  Sender: FDA-Public Use
  Company Number: GB-PFIZER INC-2010025907

PATIENT
  Sex: Female

DRUGS (5)
  1. XANAX [Suspect]
     Indication: ANXIETY DISORDER
     Dosage: 1.5 MG, 1X/DAY
  2. VALIUM [Suspect]
     Indication: ANXIETY DISORDER
  3. PROZAC [Suspect]
     Indication: ANXIETY DISORDER
  4. PAROXETINE HYDROCHLORIDE [Suspect]
     Indication: ANXIETY DISORDER
  5. MOCLOBEMIDE [Suspect]
     Indication: DEPRESSION

REACTIONS (3)
  - BREAST CANCER [None]
  - DRUG INEFFECTIVE [None]
  - SOMNOLENCE [None]
